FAERS Safety Report 10099853 (Version 1)
Quarter: 2014Q2

REPORT INFORMATION
  Report Type: Spontaneous
  Country: US (occurrence: None)
  Receive Date: 20140422
  Receipt Date: 20140422
  Transmission Date: 20141212
  Serious: Yes (Other)
  Sender: FDA-Public Use
  Company Number: None

PATIENT
  Age: 76 Year
  Sex: Female
  Weight: 61.24 kg

DRUGS (1)
  1. FOSAMAX (ALENDRONATE) [Suspect]
     Indication: OSTEOPOROSIS
     Dates: start: 20050103, end: 20100813

REACTIONS (1)
  - Osteonecrosis of jaw [None]
